FAERS Safety Report 6065369-3 (Version None)
Quarter: 2009Q1

REPORT INFORMATION
  Report Type: 
  Country: None (occurrence: None)
  Receive Date: 20090204
  Receipt Date: 20090128
  Transmission Date: 20090719
  Serious: Yes (Death, Hospitalization)
  Sender: FDA-Public Use
  Company Number: IL-ABBOTT-08P-082-0494674-00

PATIENT
  Age: 78 Year
  Sex: Female

DRUGS (8)
  1. HUMIRA [Suspect]
     Indication: CROHN'S DISEASE
     Dates: start: 20080201
  2. LOPRESSOR OROS [Concomitant]
     Indication: HYPERTENSION
  3. RAFASSAL [Concomitant]
     Indication: CROHN'S DISEASE
  4. FOLIC ACID [Concomitant]
     Indication: ANAEMIA
  5. EPREX [Concomitant]
     Indication: MYELODYSPLASTIC SYNDROME
  6. ELTROXIN [Concomitant]
     Indication: HYPOTHYROIDISM
  7. PROCTOGLYVENOL [Concomitant]
     Indication: DRUG USE FOR UNKNOWN INDICATION
  8. PREDNISONE [Concomitant]
     Indication: CROHN'S DISEASE

REACTIONS (3)
  - DELIRIUM [None]
  - ENCEPHALOPATHY [None]
  - GENERAL PHYSICAL HEALTH DETERIORATION [None]
